FAERS Safety Report 9153926 (Version 2)
Quarter: 2013Q1

REPORT INFORMATION
  Report Type: Spontaneous
  Country: KR (occurrence: None)
  Receive Date: 20130207
  Receipt Date: 20130225
  Transmission Date: 20140127
  Serious: Yes (Other)
  Sender: FDA-Public Use
  Company Number: JP-2013-10122

PATIENT
  Age: 65 Year
  Sex: Male

DRUGS (1)
  1. CILOSTAZOL [Suspect]
     Indication: CEREBRAL ARTERY STENOSIS
     Route: 048

REACTIONS (3)
  - Vertebral artery stenosis [None]
  - Condition aggravated [None]
  - Vertebral artery occlusion [None]
